FAERS Safety Report 8517241-4 (Version None)
Quarter: 2012Q3

REPORT INFORMATION
  Report Type: 
  Country: None (occurrence: None)
  Receive Date: 20120718
  Receipt Date: 20120712
  Transmission Date: 20120928
  Serious: Yes (Hospitalization)
  Sender: FDA-Public Use
  Company Number: IL-B.I. PHARMACEUTICALS,INC./RIDGEFIELD-2012-AP-00548RI

PATIENT
  Age: 83 Year
  Sex: Female
  Weight: 55 kg

DRUGS (2)
  1. PRADAXA [Suspect]
     Indication: ATRIAL FIBRILLATION
     Dosage: 150 MG
     Route: 048
  2. PROTON PUMP INHIBITOR [Concomitant]
     Indication: DYSPEPSIA

REACTIONS (4)
  - SYNCOPE [None]
  - FALL [None]
  - ABDOMINAL PAIN UPPER [None]
  - DYSPEPSIA [None]
